FAERS Safety Report 20817823 (Version 1)
Quarter: 2022Q2

REPORT INFORMATION
  Report Type: Spontaneous
  Country: NL (occurrence: NL)
  Receive Date: 20220512
  Receipt Date: 20220512
  Transmission Date: 20220721
  Serious: Yes (Death)
  Sender: FDA-Public Use
  Company Number: None

PATIENT
  Age: 72 Year
  Sex: Male
  Weight: 70 kg

DRUGS (6)
  1. CAPECITABINE [Suspect]
     Active Substance: CAPECITABINE
     Indication: Colon cancer metastatic
     Dosage: 3500 MILLIGRAM DAILY; 2X DAILY 1750MG, DURATION :42 DAYS, CAPECITABINE TABLET FO 500MG / BRAND NAME
     Dates: start: 20220211, end: 20220325
  2. OXALIPLATIN [Suspect]
     Active Substance: OXALIPLATIN
     Indication: Colon cancer metastatic
     Dosage: 245MG ONCE EVERY 3 WEEKS,  BRAND NAME NOT SPECIFIED, DURATION : 42 DAYS
     Dates: start: 20220211, end: 20220325
  3. BEVACIZUMAB [Suspect]
     Active Substance: BEVACIZUMAB
     Indication: Colon cancer metastatic
     Dosage: 1X EVERY 3 WEEKS 523MG,  BRAND NAME NOT SPECIFIED, DURATION : 43 DAYS
     Dates: start: 20220211, end: 20220326
  4. METOCLOPRAMIDE [Concomitant]
     Active Substance: METOCLOPRAMIDE
     Dosage: 10 MG (MILLIGRAM),  BRAND NAME NOT SPECIFIED, THERAPY START DATE AND END DATE : ASKU
  5. GRANISETRON [Concomitant]
     Active Substance: GRANISETRON
     Dosage: 2 MG (MILLIGRAM), BRAND NAME NOT SPECIFIED, THERAPY START DATE AND END DATE : ASKU
  6. DEXAMETHASONE [Concomitant]
     Active Substance: DEXAMETHASONE
     Dosage: 4 MG (MILLIGRAM), BRAND NAME NOT SPECIFIED, THERAPY START DATE AND END DATE : ASKU

REACTIONS (2)
  - Aortic dissection [Fatal]
  - Aortitis [Fatal]

NARRATIVE: CASE EVENT DATE: 20220407
